FAERS Safety Report 4303944-4 (Version None)
Quarter: 2004Q1

REPORT INFORMATION
  Report Type: 
  Country: None (occurrence: None)
  Receive Date: 20040223
  Receipt Date: 20031201
  Transmission Date: 20041129
  Serious: No
  Sender: FDA-Public Use
  Company Number: PHEH2003US11003

PATIENT
  Age: 60 Year
  Sex: Female

DRUGS (3)
  1. ZELNORM [Suspect]
     Dosage: 1/2 TABLET ONCE
  2. SYNTHROID [Concomitant]
  3. ROBITUSSNI ^WHITEHALL-ROBINS^ [Concomitant]

REACTIONS (3)
  - FEELING ABNORMAL [None]
  - TINNITUS [None]
  - VISION BLURRED [None]
